FAERS Safety Report 13463820 (Version 1)
Quarter: 2017Q2

REPORT INFORMATION
  Report Type: Spontaneous
  Country: US (occurrence: US)
  Receive Date: 20170420
  Receipt Date: 20170420
  Transmission Date: 20170830
  Serious: Yes (Other)
  Sender: FDA-Public Use
  Company Number: US-ROCHE-678452

PATIENT
  Age: 19 Year
  Sex: Male
  Weight: 78 kg

DRUGS (3)
  1. ACCUTANE [Suspect]
     Active Substance: ISOTRETINOIN
     Dosage: 40 MG IN MORNING; 20 MG AT NIGHT
     Route: 065
     Dates: start: 20031021, end: 200401
  2. ACCUTANE [Suspect]
     Active Substance: ISOTRETINOIN
     Route: 065
  3. ACCUTANE [Suspect]
     Active Substance: ISOTRETINOIN
     Indication: ACNE
     Route: 065

REACTIONS (4)
  - Dry skin [Unknown]
  - Large intestinal ulcer [Unknown]
  - Gastrointestinal injury [Unknown]
  - Lip dry [Unknown]

NARRATIVE: CASE EVENT DATE: 20031021
